FAERS Safety Report 7781043-7 (Version None)
Quarter: 2011Q3

REPORT INFORMATION
  Report Type: 
  Country: None (occurrence: None)
  Receive Date: 20110927
  Receipt Date: 20110920
  Transmission Date: 20111222
  Serious: Yes (Other)
  Sender: FDA-Public Use
  Company Number: US-ABBOTT-11P-163-0856708-00

PATIENT
  Sex: Female

DRUGS (8)
  1. DIOVAN [Concomitant]
     Indication: HYPERTENSION
  2. ESTRADIOL [Concomitant]
     Indication: MENOPAUSE
  3. SIMVASTATIN [Concomitant]
     Indication: BLOOD CHOLESTEROL INCREASED
  4. HUMIRA [Suspect]
     Route: 058
     Dates: start: 20110918
  5. ULTRAM [Concomitant]
     Indication: PSORIATIC ARTHROPATHY
  6. HUMIRA [Suspect]
     Indication: PSORIATIC ARTHROPATHY
     Route: 058
     Dates: start: 20110320, end: 20110807
  7. FOLIC ACID [Concomitant]
     Indication: VITAMIN SUPPLEMENTATION
  8. METHOTREXATE [Concomitant]
     Indication: PSORIATIC ARTHROPATHY

REACTIONS (3)
  - MUSCULOSKELETAL PAIN [None]
  - SHOULDER ARTHROPLASTY [None]
  - JOINT DISLOCATION [None]
